FAERS Safety Report 19025174 (Version 1)
Quarter: 2021Q1

REPORT INFORMATION
  Report Type: Spontaneous
  Country: US (occurrence: US)
  Receive Date: 20210318
  Receipt Date: 20210318
  Transmission Date: 20210420
  Serious: Yes (Hospitalization)
  Sender: FDA-Public Use
  Company Number: US-HIKMA PHARMACEUTICALS USA INC.-US-H14001-21-01212

PATIENT

DRUGS (2)
  1. GUADECITABINE [Suspect]
     Active Substance: GUADECITABINE
     Indication: GERM CELL CANCER
     Route: 042
  2. CISPLATIN. [Suspect]
     Active Substance: CISPLATIN
     Indication: GERM CELL CANCER
     Route: 042

REACTIONS (1)
  - Dyspnoea [Unknown]
